FAERS Safety Report 6802764-6 (Version None)
Quarter: 2010Q2

REPORT INFORMATION
  Report Type: 
  Country: None (occurrence: None)
  Receive Date: 20100628
  Receipt Date: 20100615
  Transmission Date: 20101027
  Serious: Yes (Hospitalization)
  Sender: FDA-Public Use
  Company Number: US-ELI_LILLY_AND_COMPANY-US201006004100

PATIENT
  Age: 63 Year
  Sex: Male
  Weight: 67.1 kg

DRUGS (6)
  1. PEMETREXED [Suspect]
     Indication: NON-SMALL CELL LUNG CANCER
     Dosage: 500 MG/M2, OTHER
     Route: 042
     Dates: start: 20100323
  2. SUNITINIB MALATE [Suspect]
     Indication: NON-SMALL CELL LUNG CANCER
     Dosage: 37.5 MG, DAILY (1/D)
     Route: 048
     Dates: start: 20100323
  3. REGLAN [Concomitant]
  4. ROXICET [Concomitant]
  5. MORPHINE SULFATE [Concomitant]
  6. ASPIRIN [Concomitant]
     Dates: end: 20100418

REACTIONS (4)
  - GASTRIC HAEMORRHAGE [None]
  - HYPOKALAEMIA [None]
  - OESOPHAGITIS [None]
  - VOMITING [None]
